FAERS Safety Report 23247476 (Version 2)
Quarter: 2024Q1

REPORT INFORMATION
  Report Type: Spontaneous
  Country: US (occurrence: US)
  Receive Date: 20231130
  Receipt Date: 20240229
  Transmission Date: 20240409
  Serious: Yes (Other)
  Sender: FDA-Public Use
  Company Number: US-APELLIS PHARMACEUTICALS-APL-2023-003196

PATIENT
  Age: 88 Year
  Sex: Female

DRUGS (20)
  1. SYFOVRE [Suspect]
     Active Substance: PEGCETACOPLAN
     Indication: Dry age-related macular degeneration
     Dosage: 15 MILLIGRAM (0.1 ML OF 150MG/ML), EVERY 4 WEEKS, THEN EVERY 9 WEEKS,OD
     Dates: start: 20230712, end: 20231016
  2. SYFOVRE [Suspect]
     Active Substance: PEGCETACOPLAN
     Dosage: 15 MILLIGRAM (0.1 ML OF 150MG/ML), EVERY 4 WEEKS, THEN EVERY 9 WEEKS,OS
     Dates: start: 20230712, end: 20231016
  3. SYFOVRE [Suspect]
     Active Substance: PEGCETACOPLAN
     Dosage: 15 MILLIGRAM (0.1 ML OF 150MG/ML), EVERY 4 WEEKS, THEN EVERY 9 WEEKS,OD
     Dates: start: 20230814, end: 20231016
  4. SYFOVRE [Suspect]
     Active Substance: PEGCETACOPLAN
     Dosage: 15 MILLIGRAM (0.1 ML OF 150MG/ML), EVERY 4 WEEKS, THEN EVERY 9 WEEKS,OS
     Dates: start: 20230814, end: 20231016
  5. SYFOVRE [Suspect]
     Active Substance: PEGCETACOPLAN
     Dosage: 15 MILLIGRAM (0.1 ML OF 150MG/ML), EVERY 4 WEEKS, THEN EVERY 9 WEEKS,OD
     Dates: start: 20231016, end: 20231016
  6. SYFOVRE [Suspect]
     Active Substance: PEGCETACOPLAN
     Dosage: 15 MILLIGRAM (0.1 ML OF 150MG/ML), EVERY 4 WEEKS, THEN EVERY 9 WEEKS,OS
     Dates: start: 20231016, end: 20231016
  7. XARELTO [Concomitant]
     Active Substance: RIVAROXABAN
     Indication: Product used for unknown indication
     Dosage: 20 MILLIGRAM, QD
     Route: 048
  8. WARFARIN [Concomitant]
     Active Substance: WARFARIN
     Indication: Product used for unknown indication
     Dosage: 2 MILLIGRAM, QD
  9. ZYRTEC [Concomitant]
     Active Substance: CETIRIZINE HYDROCHLORIDE
     Indication: Product used for unknown indication
     Dosage: 10 MILLIGRAM
  10. SYNTHROID [Concomitant]
     Active Substance: LEVOTHYROXINE SODIUM
     Indication: Product used for unknown indication
     Dosage: 75 MICROGRAM, QD
     Route: 048
     Dates: start: 20200305
  11. SYNTHROID [Concomitant]
     Active Substance: LEVOTHYROXINE SODIUM
     Dosage: 100 MICROGRAM, QD
     Route: 048
     Dates: start: 20200305
  12. FEXOFENADINE [Concomitant]
     Active Substance: FEXOFENADINE HYDROCHLORIDE
     Indication: Product used for unknown indication
     Dosage: 30 MILLIGRAM, QD
     Dates: end: 20231001
  13. METOPROLOL [Concomitant]
     Active Substance: METOPROLOL
     Indication: Product used for unknown indication
     Dosage: 50 MILLIGRAM, QD
     Route: 048
  14. VITAMINS [Concomitant]
     Active Substance: VITAMINS
     Indication: Product used for unknown indication
     Dosage: 1 DOSAGE FORM
     Route: 048
  15. VITAMIN B12 [Concomitant]
     Active Substance: CYANOCOBALAMIN
     Indication: Product used for unknown indication
     Dosage: 100 MICROGRAM, QD
     Route: 048
     Dates: start: 20200304
  16. VITAMIN D3 [Concomitant]
     Active Substance: CHOLECALCIFEROL
     Indication: Product used for unknown indication
  17. ACETAMINOPHEN [Concomitant]
     Active Substance: ACETAMINOPHEN
     Indication: Pain
     Dosage: 500 MILLIGRAM, EVERY 3 HOURS AS NEEDED
     Route: 048
     Dates: start: 20200304
  18. CHOLECALCIFEROL [Concomitant]
     Active Substance: CHOLECALCIFEROL
     Indication: Product used for unknown indication
     Dosage: 1000 UNIT TABLET, QD
     Route: 048
  19. LIDODERM [Concomitant]
     Active Substance: LIDOCAINE
     Indication: Product used for unknown indication
     Dosage: 1 PATCH ONTO SKIN EVERY 12 HOURS
     Route: 062
     Dates: start: 20230707
  20. MINERALS\VITAMINS [Concomitant]
     Active Substance: MINERALS\VITAMINS
     Indication: Product used for unknown indication
     Route: 048

REACTIONS (2)
  - Uveitis [Recovered/Resolved]
  - Uveitis [Recovered/Resolved]

NARRATIVE: CASE EVENT DATE: 20231019
